FAERS Safety Report 15397258 (Version 3)
Quarter: 2020Q1

REPORT INFORMATION
  Report Type: Spontaneous
  Country: DE (occurrence: DE)
  Receive Date: 20180918
  Receipt Date: 20200206
  Transmission Date: 20200409
  Serious: Yes (Congenital Anomaly, Other)
  Sender: FDA-Public Use
  Company Number: PHHY2018DE094202

PATIENT
  Sex: Male

DRUGS (15)
  1. DIHYDRALAZINE [Concomitant]
     Active Substance: DIHYDRALAZINE
     Indication: FOETAL EXPOSURE DURING PREGNANCY
     Dosage: UNK
     Route: 064
  2. METHYLDOPA. [Concomitant]
     Active Substance: METHYLDOPA
     Indication: HYPERTENSION
  3. NICOTINE. [Concomitant]
     Active Substance: NICOTINE
     Indication: FOETAL EXPOSURE DURING PREGNANCY
  4. VALSARTAN. [Suspect]
     Active Substance: VALSARTAN
     Indication: FOETAL EXPOSURE DURING PREGNANCY
     Dosage: 160 MG, QD
     Route: 064
  5. LEVOTHYROXINE. [Concomitant]
     Active Substance: LEVOTHYROXINE
     Indication: FOETAL EXPOSURE DURING PREGNANCY
     Dosage: UNK
     Route: 064
  6. METOPROLOL. [Concomitant]
     Active Substance: METOPROLOL
     Indication: HYPERTENSION
  7. VALSARTAN. [Suspect]
     Active Substance: VALSARTAN
     Indication: HYPERTENSION
  8. METOPROLOL. [Concomitant]
     Active Substance: METOPROLOL
     Indication: FOETAL EXPOSURE DURING PREGNANCY
     Dosage: UNK
     Route: 064
  9. INSULIN ASPART [Concomitant]
     Active Substance: INSULIN ASPART
     Indication: HYPERTENSION
  10. INSULIN ASPART [Concomitant]
     Active Substance: INSULIN ASPART
     Indication: FOETAL EXPOSURE DURING PREGNANCY
     Dosage: UNK
     Route: 064
  11. HYDROCHLOROTHIAZIDE. [Concomitant]
     Active Substance: HYDROCHLOROTHIAZIDE
     Indication: FOETAL EXPOSURE DURING PREGNANCY
     Dosage: UNK
     Route: 064
  12. DIHYDRALAZINE [Concomitant]
     Active Substance: DIHYDRALAZINE
     Indication: HYPERTENSION
  13. NICOTINE. [Concomitant]
     Active Substance: NICOTINE
     Indication: HYPERTENSION
     Dosage: UNK
     Route: 064
  14. LEVOTHYROXINE. [Concomitant]
     Active Substance: LEVOTHYROXINE
     Indication: HYPERTENSION
  15. METHYLDOPA. [Concomitant]
     Active Substance: METHYLDOPA
     Indication: FOETAL EXPOSURE DURING PREGNANCY
     Dosage: UNK
     Route: 064

REACTIONS (11)
  - Pulmonary valve stenosis congenital [Unknown]
  - Patent ductus arteriosus [Recovering/Resolving]
  - Accidental exposure to product [Unknown]
  - Hypoacusis [Unknown]
  - Foetal exposure during pregnancy [Unknown]
  - Premature baby [Unknown]
  - Foetal growth restriction [Unknown]
  - Ventricular septal defect [Unknown]
  - Inguinal hernia [Unknown]
  - Hypospadias [Unknown]
  - Atrial septal defect [Unknown]
